FAERS Safety Report 8798613 (Version 1)
Quarter: 2012Q4

REPORT INFORMATION
  Report Type: 
  Country: DE (occurrence: DE)
  Receive Date: 20120917
  Receipt Date: 20120917
  Transmission Date: 20130627
  Serious: Yes (Other)
  Sender: FDA-Public Use
  Company Number: DE-ELI_LILLY_AND_COMPANY-DE201209001157

PATIENT
  Age: 40 Year
  Sex: Male

DRUGS (6)
  1. BYDUREON [Suspect]
     Indication: TYPE 2 DIABETES MELLITUS
     Dosage: 2 mg, weekly (1/W)
     Route: 058
  2. METFORMIN [Concomitant]
     Dosage: 1000 mg, UNK
  3. GLIMEPIRID [Concomitant]
  4. LISINOPRIL [Concomitant]
     Dosage: 20 mg, UNK
  5. BISOPROLOL [Concomitant]
  6. FALITHROM [Concomitant]

REACTIONS (5)
  - Pancreatic disorder [Recovered/Resolved]
  - Abdominal pain upper [Recovered/Resolved]
  - Amylase increased [Recovered/Resolved]
  - Lipase increased [Recovered/Resolved]
  - Eructation [Not Recovered/Not Resolved]
